FAERS Safety Report 4935022-5 (Version None)
Quarter: 2006Q1

REPORT INFORMATION
  Report Type: 
  Country: None (occurrence: None)
  Receive Date: 20060306
  Receipt Date: 20060306
  Transmission Date: 20060701
  Serious: Yes (Hospitalization)
  Sender: FDA-Public Use
  Company Number: None

PATIENT
  Age: 69 Year
  Sex: Male
  Weight: 85 kg

DRUGS (6)
  1. OXALIPLATIN 130MG/M2 [Suspect]
     Indication: SMALL INTESTINE CARCINOMA METASTATIC
     Dosage: 256 MG IV
     Route: 042
     Dates: start: 20060206
  2. CAPECITABINE   1500MG/M2 [Suspect]
  3. PREDNISONE TAB [Concomitant]
  4. PENTASA [Concomitant]
  5. REGLAN [Concomitant]
  6. PREVACID [Concomitant]

REACTIONS (3)
  - BLOOD CREATININE INCREASED [None]
  - DIARRHOEA [None]
  - LIPASE INCREASED [None]
